FAERS Safety Report 4664517-7 (Version None)
Quarter: 2005Q2

REPORT INFORMATION
  Report Type: 
  Country: None (occurrence: None)
  Receive Date: 20050518
  Receipt Date: 20050429
  Transmission Date: 20051028
  Serious: Yes (Other)
  Sender: FDA-Public Use
  Company Number: US-BOEHRINGER INGELHEIM PHARMACEUTICALS, INC.-2005-BP-08083BP

PATIENT
  Age: 50 Year
  Sex: Female

DRUGS (1)
  1. DIPYRIDAMOLE [Suspect]
     Indication: CARDIAC STRESS TEST
     Route: 042
     Dates: start: 20050428, end: 20050428

REACTIONS (3)
  - EXTRAVASATION [None]
  - INJECTION SITE EXTRAVASATION [None]
  - OEDEMA PERIPHERAL [None]
